FAERS Safety Report 17688891 (Version 1)
Quarter: 2020Q2

REPORT INFORMATION
  Report Type: Spontaneous
  Country: IN (occurrence: IN)
  Receive Date: 20200421
  Receipt Date: 20200421
  Transmission Date: 20200714
  Serious: Yes (Other)
  Sender: FDA-Public Use
  Company Number: IN-CASPER PHARMA LLC-2020CAS000208

PATIENT
  Age: 16 Year
  Sex: Male

DRUGS (2)
  1. AZATHIOPRINE. [Suspect]
     Active Substance: AZATHIOPRINE
     Indication: CROHN^S DISEASE
     Dosage: 50 MICROGRAM, QD
     Route: 065
     Dates: start: 20190221, end: 20190301
  2. BUDESONIDE. [Concomitant]
     Active Substance: BUDESONIDE
     Indication: CROHN^S DISEASE
     Dosage: 9 MICROGRAM, QD
     Route: 065
     Dates: start: 201812

REACTIONS (4)
  - Polyarthritis [Recovering/Resolving]
  - Pancreatitis [Recovering/Resolving]
  - Panniculitis [Recovering/Resolving]
  - Product use in unapproved indication [Unknown]

NARRATIVE: CASE EVENT DATE: 20190225
